FAERS Safety Report 19856526 (Version 1)
Quarter: 2021Q3

REPORT INFORMATION
  Report Type: Other
  Country: CA (occurrence: CA)
  Receive Date: 20210920
  Receipt Date: 20210920
  Transmission Date: 20211014
  Serious: Yes (Other)
  Sender: FDA-Public Use
  Company Number: CA-APOTEX-2021AP042592

PATIENT
  Age: 10 Year
  Sex: Female

DRUGS (14)
  1. EFAVIRENZ. [Suspect]
     Active Substance: EFAVIRENZ
     Indication: ANTIRETROVIRAL THERAPY
     Dosage: UNK
     Route: 065
  2. ZIDOVUDINE. [Suspect]
     Active Substance: ZIDOVUDINE
     Indication: ANTIRETROVIRAL THERAPY
     Dosage: UNK
     Route: 065
  3. AMPHOTERICIN B. [Suspect]
     Active Substance: AMPHOTERICIN B
     Dosage: UNK
     Route: 065
  4. ACETAMINOPHEN. [Suspect]
     Active Substance: ACETAMINOPHEN
     Indication: DRUG TOXICITY PROPHYLAXIS
     Dosage: UNK
     Route: 065
  5. MEPERIDINE [PETHIDINE] [Suspect]
     Active Substance: MEPERIDINE
     Indication: CHILLS
  6. SPORANOX [Suspect]
     Active Substance: ITRACONAZOLE
     Indication: HISTOPLASMOSIS DISSEMINATED
     Dosage: 200 MILLIGRAM, QD
     Route: 065
  7. ABACAVIR. [Suspect]
     Active Substance: ABACAVIR
     Indication: ANTIRETROVIRAL THERAPY
     Dosage: UNK
     Route: 065
  8. AMPHOTERICIN B. [Suspect]
     Active Substance: AMPHOTERICIN B
     Indication: HISTOPLASMOSIS DISSEMINATED
     Dosage: 1 MILLIGRAM/KILOGRAM, QD
     Route: 065
  9. CHLORPHENIRAMINE [CHLORPHENAMINE] [Suspect]
     Active Substance: CHLORPHENIRAMINE
     Indication: DRUG TOXICITY PROPHYLAXIS
     Dosage: UNK
     Route: 065
  10. TIVICAY [Suspect]
     Active Substance: DOLUTEGRAVIR SODIUM
     Indication: ANTIRETROVIRAL THERAPY
     Dosage: UNK
     Route: 065
  11. MEPERIDINE [PETHIDINE] [Suspect]
     Active Substance: MEPERIDINE
     Indication: DRUG TOXICITY PROPHYLAXIS
     Dosage: UNK
     Route: 065
  12. MEPERIDINE [PETHIDINE] [Suspect]
     Active Substance: MEPERIDINE
     Indication: ANALGESIC THERAPY
  13. LAMIVUDINE. [Suspect]
     Active Substance: LAMIVUDINE
     Indication: ANTIRETROVIRAL THERAPY
     Dosage: UNK
     Route: 065
  14. LOPINAVIR;RITONAVIR [Suspect]
     Active Substance: LOPINAVIR\RITONAVIR
     Indication: ANTIRETROVIRAL THERAPY
     Dosage: UNK
     Route: 065

REACTIONS (3)
  - Chills [Recovered/Resolved]
  - Nephropathy toxic [Recovered/Resolved]
  - Disease recurrence [Recovered/Resolved]
